FAERS Safety Report 6281952-4 (Version None)
Quarter: 2009Q3

REPORT INFORMATION
  Report Type: 
  Country: None (occurrence: None)
  Receive Date: 20090724
  Receipt Date: 20090721
  Transmission Date: 20100115
  Serious: Yes (Hospitalization)
  Sender: FDA-Public Use
  Company Number: JP-BRISTOL-MYERS SQUIBB COMPANY-14599112

PATIENT
  Age: 66 Year
  Sex: Male
  Weight: 62 kg

DRUGS (3)
  1. AVAPRO [Suspect]
     Indication: ESSENTIAL HYPERTENSION
     Dosage: FROM 23JAN09-15APR09,83DAYS,100MG/D GIVEN. FROM 16APR09-20APR09,5DAYS,200MG/D (DOSE INCRSD)GIVEN.
     Route: 048
     Dates: start: 20090123, end: 20090420
  2. NORVASC [Concomitant]
     Indication: ESSENTIAL HYPERTENSION
     Route: 048
     Dates: start: 19961214
  3. MUCOSOLVAN [Concomitant]
     Indication: BRONCHITIS CHRONIC
     Route: 048
     Dates: start: 20080403, end: 20090419

REACTIONS (1)
  - CEREBELLAR HAEMORRHAGE [None]
